FAERS Safety Report 24736058 (Version 1)
Quarter: 2024Q4

REPORT INFORMATION
  Report Type: Spontaneous
  Country: CA (occurrence: CA)
  Receive Date: 20241216
  Receipt Date: 20241216
  Transmission Date: 20250115
  Serious: Yes (Death, Hospitalization, Other)
  Sender: ALEXION PHARMACEUTICALS
  Company Number: CA-AstraZeneca-CH-00719942AM

PATIENT
  Age: 84 Year

DRUGS (1)
  1. SEROQUEL [Suspect]
     Active Substance: QUETIAPINE FUMARATE
     Indication: Insomnia
     Dosage: 25 MILLIGRAM

REACTIONS (6)
  - Overdose [Fatal]
  - Cardiac arrest [Fatal]
  - Delirium [Unknown]
  - Hypocapnia [Unknown]
  - Wrong technique in product usage process [Unknown]
  - Drug interaction [Unknown]
